FAERS Safety Report 12402971 (Version 2)
Quarter: 2016Q2

REPORT INFORMATION
  Report Type: Spontaneous
  Country: US (occurrence: US)
  Receive Date: 20160525
  Receipt Date: 20160531
  Transmission Date: 20160815
  Serious: Yes (Other)
  Sender: FDA-Public Use
  Company Number: US-CELGENEUS-USA-2016054362

PATIENT
  Sex: Female

DRUGS (1)
  1. THALOMID [Suspect]
     Active Substance: THALIDOMIDE
     Indication: NEURODERMATITIS
     Dosage: 50 MILLIGRAM
     Route: 048
     Dates: start: 201604, end: 20160513

REACTIONS (3)
  - Urticaria [Unknown]
  - Pain in extremity [Unknown]
  - Drug intolerance [Unknown]

NARRATIVE: CASE EVENT DATE: 2016
